FAERS Safety Report 10674327 (Version 1)
Quarter: 2014Q4

REPORT INFORMATION
  Report Type: Spontaneous
  Country: US (occurrence: None)
  Receive Date: 20141209
  Receipt Date: 20141209
  Transmission Date: 20150529
  Serious: Yes (Other)
  Sender: FDA-Public Use
  Company Number: 421453

PATIENT
  Age: 79 Year
  Sex: Male
  Weight: 74.4 kg

DRUGS (4)
  1. METFORMIN(METFORMIN) [Concomitant]
  2. LANTUS [Concomitant]
     Active Substance: INSULIN GLARGINE
  3. NOVOLOG [Suspect]
     Active Substance: INSULIN ASPART
     Indication: TYPE 2 DIABETES MELLITUS
     Dosage: SLIDING SCALE QID, SUBCUTANEOUS
     Route: 058
     Dates: start: 20140728
  4. PREDNISONE(PREDNISONE) [Concomitant]

REACTIONS (2)
  - Blood glucose fluctuation [None]
  - Hypoglycaemic seizure [None]

NARRATIVE: CASE EVENT DATE: 20140728
